FAERS Safety Report 24308243 (Version 1)
Quarter: 2024Q3

REPORT INFORMATION
  Report Type: Spontaneous
  Country: US (occurrence: US)
  Receive Date: 20240911
  Receipt Date: 20240911
  Transmission Date: 20241017
  Serious: Yes (Hospitalization)
  Sender: CHURCH & DWIGHT
  Company Number: US-ChurchDwight-2024-CDW-01423

PATIENT
  Age: 3 Year
  Sex: Female

DRUGS (1)
  1. ORAJEL [Suspect]
     Active Substance: ALLANTOIN\BENZOCAINE\CAMPHOR (NATURAL)\DIMETHICONE\MENTHOL
     Indication: Product used for unknown indication
     Route: 048
     Dates: start: 20240827

REACTIONS (2)
  - Methaemoglobinaemia [Unknown]
  - Accidental exposure to product [Unknown]

NARRATIVE: CASE EVENT DATE: 20240827
